FAERS Safety Report 5103619-8 (Version None)
Quarter: 2006Q3

REPORT INFORMATION
  Report Type: 
  Country: None (occurrence: None)
  Receive Date: 20060911
  Receipt Date: 20060911
  Transmission Date: 20061208
  Serious: No
  Sender: FDA-Public Use
  Company Number: None

PATIENT
  Age: 37 Year
  Sex: Female
  Weight: 95.2554 kg

DRUGS (3)
  1. BACTRIM DS [Suspect]
     Indication: BRONCHITIS
     Dosage: 1 TABLET   TWICE A DAY  PO
     Route: 048
     Dates: start: 20051110, end: 20051112
  2. BACTRIM DS [Suspect]
     Indication: DISEASE RECURRENCE
     Dosage: 1 TABLET   TWICE A DAY  PO
     Route: 048
     Dates: start: 20051110, end: 20051112
  3. BACTRIM DS [Suspect]
     Indication: DRUG HYPERSENSITIVITY
     Dosage: 1 TABLET   TWICE A DAY  PO
     Route: 048
     Dates: start: 20051110, end: 20051112

REACTIONS (11)
  - BACK PAIN [None]
  - DRUG EFFECT DECREASED [None]
  - JOINT SWELLING [None]
  - MOVEMENT DISORDER [None]
  - MUSCULOSKELETAL PAIN [None]
  - PAIN [None]
  - PAIN IN EXTREMITY [None]
  - PSORIATIC ARTHROPATHY [None]
  - RASH [None]
  - TARSAL TUNNEL SYNDROME [None]
  - TENOSYNOVITIS [None]
